FAERS Safety Report 5797265-0 (Version None)
Quarter: 2008Q3

REPORT INFORMATION
  Report Type: 
  Country: None (occurrence: None)
  Receive Date: 20080701
  Receipt Date: 20080620
  Transmission Date: 20090109
  Serious: Yes (Hospitalization, Disabling)
  Sender: FDA-Public Use
  Company Number: US-PFIZER INC-2008000221

PATIENT
  Sex: Female
  Weight: 70.8 kg

DRUGS (4)
  1. TAMOXIFEN CITRATE [Suspect]
     Indication: BREAST CANCER
     Route: 048
     Dates: start: 20051208
  2. ATENOLOL [Concomitant]
     Route: 048
  3. HYDROCHLOROTHIAZIDE [Concomitant]
     Route: 048
     Dates: start: 20061116, end: 20071123
  4. VYTORIN [Concomitant]
     Dosage: TEXT:10/20 MG
     Route: 048
     Dates: start: 20070611

REACTIONS (2)
  - CORONARY ARTERY DISEASE [None]
  - PRESYNCOPE [None]
